FAERS Safety Report 5471517-6 (Version None)
Quarter: 2007Q3

REPORT INFORMATION
  Report Type: 
  Country: None (occurrence: None)
  Receive Date: 20070928
  Receipt Date: 20061208
  Transmission Date: 20080115
  Serious: No
  Sender: FDA-Public Use
  Company Number: US-BRISTOL-MYERS SQUIBB COMPANY-13606918

PATIENT
  Age: 81 Year
  Sex: Male
  Weight: 61 kg

DRUGS (15)
  1. DEFINITY [Suspect]
     Indication: ECHOCARDIOGRAM
     Route: 042
     Dates: start: 20061208, end: 20061208
  2. TERAZOSIN HCL [Concomitant]
  3. METOPROLOL SUCCINATE [Concomitant]
  4. COUMADIN [Concomitant]
  5. GLYBURIDE [Concomitant]
  6. DOCUSATE [Concomitant]
  7. LISINOPRIL [Concomitant]
  8. HUMULIN N [Concomitant]
  9. FUROSEMIDE [Concomitant]
  10. DIGOXIN [Concomitant]
  11. RANITINE [Concomitant]
  12. ASPIRIN [Concomitant]
  13. FINASTERIDE [Concomitant]
  14. FLUOXETINE [Concomitant]
  15. FERROUS SULFATE TAB [Concomitant]

REACTIONS (2)
  - BACK PAIN [None]
  - HEADACHE [None]
